FAERS Safety Report 13705466 (Version 1)
Quarter: 2017Q2

REPORT INFORMATION
  Report Type: Report from Study
  Country: IT (occurrence: IT)
  Receive Date: 20170630
  Receipt Date: 20170630
  Transmission Date: 20170830
  Serious: Yes (Other)
  Sender: FDA-Public Use
  Company Number: IT-TEVA-781610ACC

PATIENT
  Age: 16 Year
  Sex: Female

DRUGS (1)
  1. CARBOLITHIUM - 300 MG CAPSULE RIGIDE - TEVA ITALIA S.R.L. [Suspect]
     Active Substance: LITHIUM CARBONATE
     Indication: INTENTIONAL SELF-INJURY
     Dosage: 15 DF TOTAL
     Route: 048
     Dates: start: 20170406, end: 20170406

REACTIONS (2)
  - Drug use disorder [Recovering/Resolving]
  - Intentional self-injury [Recovering/Resolving]

NARRATIVE: CASE EVENT DATE: 20170406
